FAERS Safety Report 8553798-5 (Version None)
Quarter: 2012Q2

REPORT INFORMATION
  Report Type: 
  Country: None (occurrence: None)
  Receive Date: 20120417
  Receipt Date: 20110531
  Transmission Date: 20120825
  Serious: Yes (Other)
  Sender: FDA-Public Use
  Company Number: 11-329

PATIENT
  Age: 51 Year
  Sex: Female
  Weight: 74.83 kg

DRUGS (2)
  1. MULTI-VITAMINS [Concomitant]
  2. NAPROXEN SODIUM [Suspect]
     Indication: ORAL PAIN
     Dosage: 2DF / ONCE / ORAL
     Route: 048
     Dates: start: 20110526, end: 20110526

REACTIONS (1)
  - HYPERSENSITIVITY [None]
